FAERS Safety Report 7021313-3 (Version None)
Quarter: 2010Q3

REPORT INFORMATION
  Report Type: 
  Country: None (occurrence: None)
  Receive Date: 20100929
  Receipt Date: 20100924
  Transmission Date: 20110219
  Serious: No
  Sender: FDA-Public Use
  Company Number: US-PFIZER INC-2010122448

PATIENT
  Sex: Female

DRUGS (3)
  1. NORVASC [Suspect]
     Indication: HYPERTENSION
     Route: 048
     Dates: end: 20100901
  2. GLUCOVANCE [Concomitant]
     Indication: DIABETES MELLITUS
  3. PRILOSEC [Concomitant]

REACTIONS (1)
  - FATIGUE [None]
